FAERS Safety Report 18919644 (Version 1)
Quarter: 2021Q1

REPORT INFORMATION
  Report Type: Spontaneous
  Country: DE (occurrence: DE)
  Receive Date: 20210221
  Receipt Date: 20210221
  Transmission Date: 20210420
  Serious: Yes (Other)
  Sender: FDA-Public Use
  Company Number: DE-AMGEN-DEUSP2021028296

PATIENT
  Age: 68 Year
  Sex: Female

DRUGS (2)
  1. AIMOVIG [Suspect]
     Active Substance: ERENUMAB-AOOE
     Dosage: 70 MILLIGRAM
     Route: 065
     Dates: start: 202007, end: 20210211
  2. AIMOVIG [Suspect]
     Active Substance: ERENUMAB-AOOE
     Indication: MIGRAINE
     Dosage: 70 MILLIGRAM
     Route: 065
     Dates: start: 20190122, end: 202003

REACTIONS (5)
  - Papule [Unknown]
  - Pruritus [Unknown]
  - Psoriasis [Unknown]
  - Eyelid oedema [Unknown]
  - Skin reaction [Unknown]

NARRATIVE: CASE EVENT DATE: 2020
